FAERS Safety Report 8399324-5 (Version None)
Quarter: 2012Q2

REPORT INFORMATION
  Report Type: 
  Country: None (occurrence: None)
  Receive Date: 20120531
  Receipt Date: 20120517
  Transmission Date: 20120825
  Serious: Yes (Death)
  Sender: FDA-Public Use
  Company Number: IT-CELGENEUS-083-21880-12050616

PATIENT

DRUGS (9)
  1. OXYCONTIN [Concomitant]
     Indication: PAIN
     Route: 065
  2. REVLIMID [Suspect]
     Indication: NON-HODGKIN'S LYMPHOMA
     Dosage: 25 MILLIGRAM
     Route: 048
     Dates: start: 20090326
  3. OMEPRAZOLE [Concomitant]
     Indication: PROPHYLAXIS
     Dosage: 20 MILLIGRAM
     Route: 048
  4. LYRICA [Concomitant]
     Indication: PAIN
     Route: 065
  5. MORPHINE [Concomitant]
     Indication: PAIN
     Route: 065
  6. VALSARTAN  AND HYDROCHLOROTHIAZIDE [Concomitant]
     Indication: HYPERTENSION
     Dosage: .5 TABLET
     Route: 048
  7. COUMADIN [Concomitant]
     Indication: ANTICOAGULANT THERAPY
     Route: 065
  8. NICETILE [Concomitant]
     Indication: PAIN
     Route: 065
  9. LEVOTHYROXINE SODIUM [Concomitant]
     Indication: HYPOTHYROIDISM
     Dosage: 75 MILLIGRAM
     Route: 048

REACTIONS (1)
  - NON-HODGKIN'S LYMPHOMA [None]
